FAERS Safety Report 7592815-6 (Version None)
Quarter: 2011Q3

REPORT INFORMATION
  Report Type: 
  Country: None (occurrence: None)
  Receive Date: 20110706
  Receipt Date: 20110629
  Transmission Date: 20111222
  Serious: Yes (Hospitalization)
  Sender: FDA-Public Use
  Company Number: FR-NAPPMUNDI-GBR-2011-0008464

PATIENT
  Sex: Female

DRUGS (2)
  1. FOSFOCINE [Suspect]
     Indication: INFECTION
     Dosage: 4 UNK, UNK
     Route: 042
     Dates: start: 20110118, end: 20110128
  2. OXYCODONE HYDROCHLORIDE [Suspect]
     Indication: PAIN
     Dosage: 5 MG, UNK
     Route: 048
     Dates: start: 20110114, end: 20110121

REACTIONS (5)
  - SOMNOLENCE [None]
  - CONFUSIONAL STATE [None]
  - HYPERNATRAEMIA [None]
  - HYPOKALAEMIA [None]
  - VOMITING [None]
